FAERS Safety Report 26112607 (Version 1)
Quarter: 2025Q4

REPORT INFORMATION
  Report Type: Spontaneous
  Country: US (occurrence: None)
  Receive Date: 20251202
  Receipt Date: 20251202
  Transmission Date: 20260118
  Serious: Yes (Other)
  Sender: FDA-CTU
  Company Number: None

PATIENT
  Sex: Female

DRUGS (2)
  1. XDEMVY [Suspect]
     Active Substance: LOTILANER
     Dosage: INSTILL 1 DROP INTO BOTH EYES TWICE DAILY APPROXIMATELY 12 HOURS APART FOR 6 WEEKS
     Route: 047
     Dates: start: 20250701
  2. MIEBO DRO 1.3GM/ML [Concomitant]

REACTIONS (8)
  - Dry eye [None]
  - Disease recurrence [None]
  - Pain [None]
  - Blepharitis [None]
  - Eye pruritus [None]
  - Lacrimation increased [None]
  - Quality of life decreased [None]
  - Eye infection [None]
